FAERS Safety Report 8793489 (Version 1)
Quarter: 2012Q4

REPORT INFORMATION
  Report Type: 
  Country: RU (occurrence: RU)
  Receive Date: 20120917
  Receipt Date: 20120917
  Transmission Date: 20130627
  Serious: Yes (Other)
  Sender: FDA-Public Use
  Company Number: RU-EISAI INC-E3810-04453-SPO-RU

PATIENT
  Age: 59 Year
  Sex: Female

DRUGS (2)
  1. E3810 (RABEPRAZOLE) [Suspect]
     Indication: GASTROOESOPHAGEAL REFLUX DISEASE
     Route: 048
     Dates: start: 20101229, end: 20110108
  2. THYROXINE [Concomitant]

REACTIONS (2)
  - Bronchospasm [Recovered/Resolved]
  - Angioedema [Recovered/Resolved]
